FAERS Safety Report 9781299 (Version 1)
Quarter: 2013Q4

REPORT INFORMATION
  Report Type: Spontaneous
  Country: GB (occurrence: GB)
  Receive Date: 20131224
  Receipt Date: 20131224
  Transmission Date: 20140711
  Serious: Yes (Hospitalization, Other)
  Sender: FDA-Public Use
  Company Number: GB-ACTAVIS-2013-23050

PATIENT
  Age: 50 Year
  Sex: Female

DRUGS (5)
  1. PHENYTOIN (AMALLC) [Suspect]
     Indication: CONVULSION
     Dosage: 300 MG, DAILY
     Route: 065
  2. RAMIPRIL [Concomitant]
     Indication: PRODUCT USED FOR UNKNOWN INDICATION
     Dosage: 2.5 MG, DAILY
     Route: 065
  3. THIAMINE                           /00056102/ [Concomitant]
     Indication: PRODUCT USED FOR UNKNOWN INDICATION
     Dosage: 100 MG, BID
     Route: 065
  4. VITAMIN B COMPOUND                 /00003501/ [Concomitant]
     Indication: PRODUCT USED FOR UNKNOWN INDICATION
     Dosage: 1 DF, BID
  5. FOLIC ACID [Concomitant]
     Indication: PRODUCT USED FOR UNKNOWN INDICATION
     Dosage: 5 MG, DAILY

REACTIONS (13)
  - Cerebellar syndrome [Recovering/Resolving]
  - Cerebellar ataxia [Recovering/Resolving]
  - Nystagmus [Recovering/Resolving]
  - Intention tremor [Recovering/Resolving]
  - Past-pointing [Recovering/Resolving]
  - Dysarthria [Recovering/Resolving]
  - Balance disorder [Recovering/Resolving]
  - Toxicity to various agents [Recovering/Resolving]
  - Head injury [Unknown]
  - Fall [Unknown]
  - Gingival hypertrophy [Unknown]
  - Hirsutism [Unknown]
  - Alcohol interaction [Recovering/Resolving]
